FAERS Safety Report 12166367 (Version 2)
Quarter: 2016Q2

REPORT INFORMATION
  Report Type: Spontaneous
  Country: BR (occurrence: BR)
  Receive Date: 20160309
  Receipt Date: 20160525
  Transmission Date: 20160815
  Serious: Yes (Other)
  Sender: FDA-Public Use
  Company Number: BR-AMGEN-BRASP2016014814

PATIENT
  Age: 40 Year
  Sex: Female
  Weight: 75 kg

DRUGS (5)
  1. ESCITALOPRAM [Concomitant]
     Active Substance: ESCITALOPRAM OXALATE
     Indication: ANTIDEPRESSANT THERAPY
     Dosage: 15 MG, IN THE MORNING
     Route: 048
  2. RIVOTRIL [Concomitant]
     Active Substance: CLONAZEPAM
     Indication: SLEEP DISORDER
     Dosage: 2 MG, AT NIGHT
     Route: 048
  3. ENBREL [Suspect]
     Active Substance: ETANERCEPT
     Indication: PSORIATIC ARTHROPATHY
     Dosage: 50 MG, ONCE WEEKLY
     Route: 058
     Dates: start: 2012, end: 20160116
  4. METHOTREXATE SODIUM. [Suspect]
     Active Substance: METHOTREXATE SODIUM
     Indication: PRODUCT USED FOR UNKNOWN INDICATION
     Dosage: 4 TO 6 TABLETS, UNSPEFICIED FREQUENCY
     Route: 065
     Dates: start: 2016, end: 2016
  5. FOLIC ACID. [Concomitant]
     Active Substance: FOLIC ACID
     Dosage: UNK
     Dates: start: 2016

REACTIONS (16)
  - Asthenia [Not Recovered/Not Resolved]
  - Pain [Unknown]
  - Grip strength decreased [Unknown]
  - Disease progression [Not Recovered/Not Resolved]
  - Mouth injury [Unknown]
  - Psoriatic arthropathy [Not Recovered/Not Resolved]
  - Arthralgia [Unknown]
  - Back pain [Not Recovered/Not Resolved]
  - Sensitivity to weather change [Unknown]
  - Drug ineffective [Unknown]
  - Drug effect incomplete [Unknown]
  - Joint stiffness [Unknown]
  - Gait disturbance [Not Recovered/Not Resolved]
  - Toxicity to various agents [Unknown]
  - Alopecia [Unknown]
  - Vomiting [Unknown]

NARRATIVE: CASE EVENT DATE: 2016
